FAERS Safety Report 8512057-7 (Version None)
Quarter: 2012Q3

REPORT INFORMATION
  Report Type: 
  Country: None (occurrence: None)
  Receive Date: 20120716
  Receipt Date: 20120713
  Transmission Date: 20120928
  Serious: No
  Sender: FDA-Public Use
  Company Number: US-PFIZER INC-2012169635

PATIENT
  Sex: Female

DRUGS (1)
  1. DIFLUCAN [Suspect]
     Indication: CANDIDIASIS
     Dosage: UNK
     Route: 048

REACTIONS (3)
  - ORAL CANDIDIASIS [None]
  - DRUG INEFFECTIVE [None]
  - DRUG RESISTANCE [None]
